FAERS Safety Report 26157404 (Version 1)
Quarter: 2025Q4

REPORT INFORMATION
  Report Type: Report from Study
  Country: US (occurrence: US)
  Receive Date: 20251215
  Receipt Date: 20251215
  Transmission Date: 20260117
  Serious: No
  Sender: SOLENO THERAPEUTICS
  Company Number: US-SOLENO THERAPEUTICS, INC.-SOL2025000900

PATIENT
  Age: 23 Year
  Sex: Female
  Weight: 79.15 kg

DRUGS (6)
  1. DIAZOXIDE CHOLINE [Suspect]
     Active Substance: DIAZOXIDE CHOLINE
     Indication: Prader-Willi syndrome
     Dosage: UNK
     Route: 048
     Dates: start: 20251021, end: 2025
  2. DIAZOXIDE CHOLINE [Suspect]
     Active Substance: DIAZOXIDE CHOLINE
     Dosage: 300 MILLIGRAM, QD
     Route: 048
     Dates: start: 2025, end: 2025
  3. DIAZOXIDE CHOLINE [Suspect]
     Active Substance: DIAZOXIDE CHOLINE
     Dosage: 375 MILLIGRAM, QD (ONE 75MG TABLET + TWO150MG TABLETS)
     Route: 048
     Dates: start: 2025, end: 2025
  4. TRI-ESTARYLLA [Concomitant]
     Active Substance: ETHINYL ESTRADIOL\NORGESTIMATE
     Indication: Product used for unknown indication
     Dosage: UNK
     Route: 065
  5. FISH OIL [Concomitant]
     Active Substance: FISH OIL
     Indication: Product used for unknown indication
     Dosage: UNK
     Route: 065
  6. PROBIOTICS NOS [Concomitant]
     Active Substance: PROBIOTICS NOS
     Indication: Product used for unknown indication
     Dosage: UNK
     Route: 065

REACTIONS (1)
  - Oedema peripheral [Not Recovered/Not Resolved]

NARRATIVE: CASE EVENT DATE: 20251127
